FAERS Safety Report 9360780 (Version 1)
Quarter: 2013Q2

REPORT INFORMATION
  Report Type: Spontaneous
  Country: US (occurrence: None)
  Receive Date: 20130620
  Receipt Date: 20130620
  Transmission Date: 20140414
  Serious: Yes (Other)
  Sender: FDA-Public Use
  Company Number: None

PATIENT
  Age: 16 Year
  Sex: Female
  Weight: 95.5 kg

DRUGS (13)
  1. QUETIAPINE [Suspect]
     Indication: ANTISOCIAL BEHAVIOUR
     Route: 048
     Dates: start: 20100714, end: 20130606
  2. AZITHROMYCIN [Concomitant]
  3. BACTRIM DS [Concomitant]
  4. ACTIFED [Concomitant]
  5. BECLOMETHASONE [Concomitant]
  6. ALBUTEROL INHALER [Concomitant]
  7. GUAIFENESIN DM [Concomitant]
  8. GUANFACINE [Concomitant]
  9. HYDROCHLOROTHIAZIDE [Concomitant]
  10. IBUPROFEN [Concomitant]
  11. LORATADINE [Concomitant]
  12. MELATONIN [Concomitant]
  13. OXCARBAZEPINE [Concomitant]

REACTIONS (1)
  - Cataract [None]
